FAERS Safety Report 8778127 (Version 2)
Quarter: 2012Q4

REPORT INFORMATION
  Report Type: 
  Country: US (occurrence: US)
  Receive Date: 20120912
  Receipt Date: 20120927
  Transmission Date: 20130627
  Serious: No
  Sender: FDA-Public Use
  Company Number: US-ASTRAZENECA-2012SE65480

PATIENT
  Age: 57 Year
  Sex: Female

DRUGS (1)
  1. SEROQUEL [Suspect]
     Route: 048

REACTIONS (6)
  - Anxiety [Unknown]
  - Agitation [Unknown]
  - Speech disorder [Unknown]
  - Abnormal behaviour [Unknown]
  - Mental disorder [Unknown]
  - Drug effect incomplete [Unknown]
